FAERS Safety Report 7641839-9 (Version None)
Quarter: 2011Q3

REPORT INFORMATION
  Report Type: 
  Country: None (occurrence: None)
  Receive Date: 20110728
  Receipt Date: 20110721
  Transmission Date: 20111222
  Serious: Yes (Death)
  Sender: FDA-Public Use
  Company Number: EC-ROCHE-791546

PATIENT
  Sex: Male
  Weight: 73.5 kg

DRUGS (4)
  1. OXALIPLATINO [Concomitant]
     Dosage: ONCE A DAY ( DAY ONE)
     Route: 042
     Dates: start: 20110516
  2. LEUCOVORIN CALCIUM [Concomitant]
     Dosage: ON DAY 1 AND DAY 2
     Route: 042
     Dates: start: 20110516
  3. AVASTIN [Suspect]
     Indication: COLORECTAL CANCER
     Route: 042
     Dates: start: 20110516
  4. FLUOROURACIL [Concomitant]
     Dosage: ADMINISTERED ON DAY 1 AND DAY 2
     Route: 042
     Dates: start: 20110516

REACTIONS (1)
  - CARDIO-RESPIRATORY ARREST [None]
